FAERS Safety Report 4573053-8 (Version None)
Quarter: 2005Q1

REPORT INFORMATION
  Report Type: 
  Country: None (occurrence: None)
  Receive Date: 20050204
  Receipt Date: 20050117
  Transmission Date: 20050727
  Serious: Yes (Hospitalization)
  Sender: FDA-Public Use
  Company Number: SHI_00009_2005

PATIENT
  Age: 14 Year
  Sex: Female

DRUGS (9)
  1. KEIMAX [Suspect]
     Dosage: 4 G ONCE PO
     Route: 048
     Dates: start: 20030918, end: 20030918
  2. PANTOPRAZOLE SODIUM [Suspect]
     Dosage: 6 G ONCE PO
     Route: 048
     Dates: start: 20030918, end: 20030918
  3. KATADOLON [Suspect]
     Dosage: 2 G ONCE PO
     Route: 048
     Dates: start: 20030918, end: 20030918
  4. LEVOCETIRIZINE (XUSAL) [Suspect]
     Dosage: 35 MG ONCE PO
     Route: 048
     Dates: start: 20030918, end: 20030918
  5. CIPROFLOXACIN [Suspect]
     Dosage: 600 MG ONCE PO
     Route: 048
     Dates: start: 20030918, end: 20030918
  6. MAGNESIUM SULFATE [Suspect]
     Dosage: 5 G ONCE PO
     Route: 048
     Dates: start: 20030918, end: 20030918
  7. PHOSETAMIN [Suspect]
     Dosage: 7 G ONCE PO
     Route: 048
     Dates: start: 20030918, end: 20030918
  8. VOLTAREN RESINATE [Suspect]
     Dosage: 1.4 G ONCE PO
     Route: 048
     Dates: start: 20030918, end: 20030918
  9. TETRAHYDROCANNABINOL [Suspect]
     Dosage: DF ONCE
     Dates: start: 20030918, end: 20030918

REACTIONS (4)
  - DRUG SCREEN POSITIVE [None]
  - HYPOCALCAEMIA [None]
  - MULTIPLE DRUG OVERDOSE [None]
  - SUICIDE ATTEMPT [None]
